FAERS Safety Report 16143988 (Version 3)
Quarter: 2019Q2

REPORT INFORMATION
  Report Type: Report from Study
  Country: CA (occurrence: CA)
  Receive Date: 20190401
  Receipt Date: 20190508
  Transmission Date: 20190711
  Serious: Yes (Life-Threatening, Hospitalization, Disabling)
  Sender: FDA-Public Use
  Company Number: CA-ACTELION-A-NJ2019-188277

PATIENT
  Age: 46 Year
  Sex: Female

DRUGS (17)
  1. KCL [Concomitant]
     Active Substance: POTASSIUM CHLORIDE
  2. MULTI VITAMIN [Concomitant]
     Active Substance: VITAMINS
  3. CYMBALTA [Concomitant]
     Active Substance: DULOXETINE HYDROCHLORIDE
  4. NORTRIPTYLINE [Concomitant]
     Active Substance: NORTRIPTYLINE
  5. XARELTO [Concomitant]
     Active Substance: RIVAROXABAN
     Dosage: 20 MG, QD
  6. PANTOPRAZOLE [Concomitant]
     Active Substance: PANTOPRAZOLE
  7. ALDACTONE [Concomitant]
     Active Substance: SPIRONOLACTONE
     Dosage: 75 MG, QD
  8. OPSUMIT [Suspect]
     Active Substance: MACITENTAN
     Indication: PULMONARY ARTERIAL HYPERTENSION
     Dosage: 10 MG, QD
     Route: 048
     Dates: start: 20160429
  9. HYDROMORPHONE HCL [Concomitant]
     Active Substance: HYDROMORPHONE HYDROCHLORIDE
  10. ADCIRCA [Suspect]
     Active Substance: TADALAFIL
     Indication: PRODUCT USED FOR UNKNOWN INDICATION
     Dosage: 40 MG, QD
     Route: 065
  11. VENTOLIN [Concomitant]
     Active Substance: ALBUTEROL SULFATE
     Dosage: 100 MCG, Q4HRS
  12. FUROSEMIDE. [Concomitant]
     Active Substance: FUROSEMIDE
     Dosage: 120 MG, BID
  13. PREGABALIN. [Concomitant]
     Active Substance: PREGABALIN
  14. SENOKOT [Concomitant]
     Active Substance: SENNOSIDES
  15. CLONAZEPAM. [Concomitant]
     Active Substance: CLONAZEPAM
  16. OXYGEN. [Concomitant]
     Active Substance: OXYGEN
     Dosage: 0.5 L VIA NC
  17. UTIBRON NEOHALER [Concomitant]
     Active Substance: GLYCOPYRROLATE\INDACATEROL MALEATE
     Dosage: 1150/50 1 CAPSULE/INHALER PER DAY

REACTIONS (7)
  - Infection [Unknown]
  - Mental status changes [Unknown]
  - Small cell lung cancer [Not Recovered/Not Resolved]
  - Oxygen consumption decreased [Unknown]
  - Pneumonia [Recovering/Resolving]
  - Dyspnoea [Recovering/Resolving]
  - Hypercapnia [Recovering/Resolving]

NARRATIVE: CASE EVENT DATE: 20190217
